FAERS Safety Report 9352481 (Version 2)
Quarter: 2013Q4

REPORT INFORMATION
  Report Type: Spontaneous
  Country: US (occurrence: US)
  Receive Date: 20130617
  Receipt Date: 20131127
  Transmission Date: 20140711
  Serious: Yes (Hospitalization)
  Sender: FDA-Public Use
  Company Number: US-B.I. PHARMACEUTICALS,INC./RIDGEFIELD-2013-BI-16733BP

PATIENT
  Age: 53 Year
  Sex: Female
  Weight: 92.53 kg

DRUGS (13)
  1. PRADAXA [Suspect]
     Indication: ATRIAL FIBRILLATION
     Dosage: 300 MG
     Dates: start: 20110518, end: 20120320
  2. METOPROLOL [Concomitant]
     Dosage: 50 MG
  3. LYRICA [Concomitant]
     Dosage: 100 MG
  4. REQUIP [Concomitant]
     Dosage: 1 MG
  5. SEROQUEL [Concomitant]
     Dosage: 25 MG
  6. XANAX [Concomitant]
     Dosage: 1 MG
  7. TOPAMAX [Concomitant]
     Dosage: 50 MG
  8. AMBIEN [Concomitant]
     Dosage: 10 MG
  9. CYMBALTA [Concomitant]
     Dosage: 60 MG
  10. NORCO [Concomitant]
     Indication: PAIN
  11. ZANAFLEX [Concomitant]
  12. LASIX [Concomitant]
     Dosage: 20 MG
  13. POTASSIUM CHLORIDE [Concomitant]
     Dosage: 40 MEQ

REACTIONS (2)
  - Upper gastrointestinal haemorrhage [Unknown]
  - Epistaxis [Unknown]
